FAERS Safety Report 10910181 (Version 2)
Quarter: 2016Q1

REPORT INFORMATION
  Report Type: Spontaneous
  Country: US (occurrence: US)
  Receive Date: 20150312
  Receipt Date: 20160322
  Transmission Date: 20160525
  Serious: No
  Sender: FDA-Public Use
  Company Number: US-SA-2014SA114039

PATIENT
  Age: 50 Year
  Sex: Female

DRUGS (4)
  1. NASACORT AQ [Concomitant]
     Active Substance: TRIAMCINOLONE ACETONIDE
     Indication: HYPERSENSITIVITY
     Route: 065
  2. NASACORT ALLERGY 24HR [Suspect]
     Active Substance: TRIAMCINOLONE ACETONIDE
     Indication: HYPERSENSITIVITY
     Dosage: PRODUCT START DATE- NOVEMBER?PRODUCT END DATE- NOVEMBER?DAILY DOSAGE - 2 SPRAYS PER NOSTRIL
     Route: 045
  3. NASACORT ALLERGY 24HR [Suspect]
     Active Substance: TRIAMCINOLONE ACETONIDE
     Indication: HYPERSENSITIVITY
     Dosage: PRODUCT START DATE- NOVEMBER?PRODUCT END DATE- NOVEMBER?DAILY DOSAGE - 2 SPRAYS PER NOSTRIL
     Route: 045
  4. NASACORT ALLERGY 24HR [Suspect]
     Active Substance: TRIAMCINOLONE ACETONIDE
     Indication: HYPERSENSITIVITY
     Dosage: PRODUCT START DATE- NOVEMBER?PRODUCT END DATE- NOVEMBER?DAILY DOSAGE - 2 SPRAYS PER NOSTRIL
     Route: 045

REACTIONS (5)
  - Sinusitis [Not Recovered/Not Resolved]
  - Nasal discomfort [Not Recovered/Not Resolved]
  - Malaise [Unknown]
  - Haemoptysis [Not Recovered/Not Resolved]
  - Drug ineffective [Unknown]

NARRATIVE: CASE EVENT DATE: 20140820
